FAERS Safety Report 23026804 (Version 4)
Quarter: 2024Q3

REPORT INFORMATION
  Report Type: Report from Study
  Country: IN (occurrence: IN)
  Receive Date: 20231004
  Receipt Date: 20240709
  Transmission Date: 20241016
  Serious: Yes (Death, Hospitalization)
  Sender: ROCHE
  Company Number: IN-ROCHE-3386919

PATIENT
  Age: 68 Year
  Sex: Male
  Weight: 64 kg

DRUGS (2)
  1. TECENTRIQ [Suspect]
     Active Substance: ATEZOLIZUMAB
     Indication: Lung neoplasm malignant
     Route: 041
     Dates: start: 20230525
  2. TECENTRIQ [Suspect]
     Active Substance: ATEZOLIZUMAB
     Route: 042

REACTIONS (6)
  - Off label use [Unknown]
  - Haemoglobin decreased [Unknown]
  - Hypoxia [Unknown]
  - Dyspnoea [Unknown]
  - Platelet count decreased [Fatal]
  - Tuberculosis [Fatal]

NARRATIVE: CASE EVENT DATE: 20231121
